FAERS Safety Report 13987457 (Version 1)
Quarter: 2017Q3

REPORT INFORMATION
  Report Type: Spontaneous
  Country: US (occurrence: US)
  Receive Date: 20170919
  Receipt Date: 20170919
  Transmission Date: 20171128
  Serious: Yes (Other)
  Sender: FDA-Public Use
  Company Number: US-PFIZER INC-2017399590

PATIENT
  Age: 73 Year
  Sex: Female
  Weight: 90.72 kg

DRUGS (5)
  1. PROPRANOLOL [Concomitant]
     Active Substance: PROPRANOLOL HYDROCHLORIDE
     Indication: HYPERTENSION
     Dosage: 20 MG, 1X/DAY
     Route: 048
  2. LETROZOLE. [Suspect]
     Active Substance: LETROZOLE
     Indication: BREAST CANCER
     Dosage: 2.5MG TABLET, ONCE A DAY 21 DAYS AND ALONE FOR 7 DAYS WITH NO IBRANCE
     Route: 048
     Dates: start: 201603
  3. IBRANCE [Suspect]
     Active Substance: PALBOCICLIB
     Dosage: 100MG CAPSULE, ONCE A DAY FOR 21 DAYS AND OFF 7 DAYS
  4. IBRANCE [Suspect]
     Active Substance: PALBOCICLIB
     Indication: BREAST CANCER
     Dosage: 125MG CAPSULE
     Dates: start: 201603
  5. ASPIRIN. [Concomitant]
     Active Substance: ASPIRIN
     Indication: CEREBROVASCULAR ACCIDENT
     Dosage: 81 MG, 1X/DAY
     Route: 048

REACTIONS (10)
  - Dyspnoea [Unknown]
  - Condition aggravated [Not Recovered/Not Resolved]
  - Pulmonary oedema [Unknown]
  - Myocardial infarction [Unknown]
  - Neoplasm progression [Unknown]
  - Stomatitis [Recovering/Resolving]
  - Weight increased [Unknown]
  - Decreased appetite [Unknown]
  - Somnolence [Unknown]
  - Ageusia [Not Recovered/Not Resolved]

NARRATIVE: CASE EVENT DATE: 2015
